FAERS Safety Report 5459515-X (Version None)
Quarter: 2007Q3

REPORT INFORMATION
  Report Type: 
  Country: None (occurrence: None)
  Receive Date: 20070919
  Receipt Date: 20070913
  Transmission Date: 20080115
  Serious: Yes (Other)
  Sender: FDA-Public Use
  Company Number: B0487498A

PATIENT
  Sex: Female

DRUGS (4)
  1. AVANDAMET [Suspect]
     Route: 048
     Dates: start: 20070201, end: 20070528
  2. METFORMIN HCL [Concomitant]
     Dates: end: 20070201
  3. HYDROCHLOROTHIAZIDE [Concomitant]
  4. VALSARTAN [Concomitant]

REACTIONS (5)
  - CARDIAC DISORDER [None]
  - ECG SIGNS OF MYOCARDIAL ISCHAEMIA [None]
  - ELECTROCARDIOGRAM ST SEGMENT DEPRESSION [None]
  - ISCHAEMIA [None]
  - SYNCOPE [None]
